FAERS Safety Report 6652377-4 (Version None)
Quarter: 2010Q1

REPORT INFORMATION
  Report Type: 
  Country: None (occurrence: None)
  Receive Date: 20100325
  Receipt Date: 20100315
  Transmission Date: 20100710
  Serious: Yes (Death)
  Sender: FDA-Public Use
  Company Number: JP-ROCHE-692154

PATIENT
  Age: 42 Year
  Sex: Female

DRUGS (1)
  1. TAMIFLU [Suspect]
     Indication: INFLUENZA
     Route: 048
     Dates: start: 20100108

REACTIONS (2)
  - PATHOGEN RESISTANCE [None]
  - PNEUMONIA CYTOMEGALOVIRAL [None]
